FAERS Safety Report 24260079 (Version 1)
Quarter: 2024Q3

REPORT INFORMATION
  Report Type: Spontaneous
  Country: CH (occurrence: None)
  Receive Date: 20240827
  Receipt Date: 20240827
  Transmission Date: 20241017
  Serious: Yes (Other)
  Sender: Public
  Company Number: None

PATIENT
  Age: 66 Year
  Sex: Female

DRUGS (3)
  1. PROLIA [Suspect]
     Active Substance: DENOSUMAB
     Indication: Osteoporosis
     Dosage: OTHER QUANTITY : 1 INJECTION(S);?OTHER FREQUENCY : 1 EVERY 6 MONTHS;?
     Route: 030
  2. CALCIUM [Concomitant]
     Active Substance: CALCIUM
  3. VITAMIN D3 [Concomitant]
     Active Substance: CHOLECALCIFEROL

REACTIONS (32)
  - Mouth swelling [None]
  - Skin disorder [None]
  - Headache [None]
  - Diarrhoea [None]
  - Dizziness [None]
  - Dissociation [None]
  - Feeling abnormal [None]
  - Joint swelling [None]
  - Disturbance in attention [None]
  - Motion sickness [None]
  - Weight decreased [None]
  - Dysuria [None]
  - Chromaturia [None]
  - Urine odour abnormal [None]
  - Constipation [None]
  - Dry skin [None]
  - Skin fissures [None]
  - Alopecia [None]
  - Fatigue [None]
  - Insomnia [None]
  - Hyperhidrosis [None]
  - Paraesthesia [None]
  - Thirst [None]
  - Contusion [None]
  - Impaired healing [None]
  - Injury [None]
  - Impaired healing [None]
  - Dysphonia [None]
  - Joint stiffness [None]
  - Stiff leg syndrome [None]
  - Back pain [None]
  - Mobility decreased [None]

NARRATIVE: CASE EVENT DATE: 20240416
